FAERS Safety Report 4390391-2 (Version None)
Quarter: 2004Q2

REPORT INFORMATION
  Report Type: 
  Country: None (occurrence: None)
  Receive Date: 20040630
  Receipt Date: 20040616
  Transmission Date: 20050107
  Serious: No
  Sender: FDA-Public Use
  Company Number: 02100-JPN-04-0139

PATIENT
  Age: 68 Year
  Sex: Male

DRUGS (6)
  1. CILOSTAZOL [Suspect]
     Dosage: 100 MG/200 MG
     Route: 048
     Dates: start: 20040323, end: 20040415
  2. CILOSTAZOL [Suspect]
     Dosage: 100 MG/200 MG
     Route: 048
     Dates: start: 20040416, end: 20040420
  3. EPALRESTAT [Suspect]
     Dosage: 150 MG,
     Route: 048
     Dates: start: 20040323, end: 20040420
  4. ACARBOSE [Suspect]
     Dosage: 300 MG
     Route: 048
     Dates: start: 20040323, end: 20040420
  5. NATEGLINIDE [Suspect]
     Dosage: 270 MG
     Route: 048
     Dates: start: 20040323, end: 20040420
  6. CARBAMAZEPINE [Concomitant]

REACTIONS (1)
  - DRUG ERUPTION [None]
